FAERS Safety Report 7715478-5 (Version None)
Quarter: 2011Q3

REPORT INFORMATION
  Report Type: 
  Country: None (occurrence: None)
  Receive Date: 20110829
  Receipt Date: 20110817
  Transmission Date: 20111222
  Serious: Yes (Other)
  Sender: FDA-Public Use
  Company Number: US-JNJFOC-20110811482

PATIENT
  Sex: Male
  Weight: 56.7 kg

DRUGS (2)
  1. TYLENOL-500 [Suspect]
     Indication: PRODUCT USED FOR UNKNOWN INDICATION
  2. TYLENOL-500 [Suspect]

REACTIONS (4)
  - INTENTIONAL OVERDOSE [None]
  - MANIA [None]
  - SUICIDAL IDEATION [None]
  - DEPRESSION [None]
